FAERS Safety Report 25506058 (Version 2)
Quarter: 2025Q3

REPORT INFORMATION
  Report Type: Spontaneous
  Country: US (occurrence: US)
  Receive Date: 20250702
  Receipt Date: 20250806
  Transmission Date: 20251021
  Serious: No
  Sender: SANOFI AVENTIS
  Company Number: US-SA-2025SA184000

PATIENT
  Age: 67 Year
  Sex: Male
  Weight: 89.55 kg

DRUGS (8)
  1. KEVZARA [Suspect]
     Active Substance: SARILUMAB
     Indication: Polymyalgia rheumatica
     Dosage: 200 MG, QOW
     Route: 058
     Dates: start: 20250128
  2. PREDNISONE [Concomitant]
     Active Substance: PREDNISONE
  3. CELEBREX [Concomitant]
     Active Substance: CELECOXIB
  4. FISH OIL\OMEGA-3 FATTY ACIDS [Concomitant]
     Active Substance: FISH OIL\OMEGA-3 FATTY ACIDS
  5. VITAMINS NOS [Concomitant]
     Active Substance: VITAMINS
  6. LISINOPRIL [Concomitant]
     Active Substance: LISINOPRIL
  7. OMEPRAZOLE [Concomitant]
     Active Substance: OMEPRAZOLE
  8. TAMSULOSIN [Concomitant]
     Active Substance: TAMSULOSIN

REACTIONS (6)
  - Fatigue [Recovering/Resolving]
  - Neck pain [Unknown]
  - Arthralgia [Recovering/Resolving]
  - Inflammation [Recovering/Resolving]
  - Loss of personal independence in daily activities [Unknown]
  - Asthenia [Unknown]

NARRATIVE: CASE EVENT DATE: 20250101
